FAERS Safety Report 4319269-7 (Version None)
Quarter: 2004Q1

REPORT INFORMATION
  Report Type: 
  Country: None (occurrence: None)
  Receive Date: 20040319
  Receipt Date: 20020115
  Transmission Date: 20041129
  Serious: Yes (Death)
  Sender: FDA-Public Use
  Company Number: 200210159EU

PATIENT
  Sex: Female

DRUGS (4)
  1. DOCETAXEL [Suspect]
     Indication: BLADDER NEOPLASM
     Route: 042
     Dates: start: 20011106, end: 20020101
  2. GEMCITABINE [Suspect]
     Indication: BLADDER NEOPLASM
     Route: 042
     Dates: start: 20011106, end: 20020101
  3. ERYTHROPOETIN [Concomitant]
     Indication: ANAEMIA
     Route: 058
     Dates: start: 20011221, end: 20020111
  4. FE [Concomitant]
     Indication: ANAEMIA
     Dates: start: 20011221, end: 20020111

REACTIONS (7)
  - ASTHENIA [None]
  - DRUG TOXICITY [None]
  - MALIGNANT NEOPLASM PROGRESSION [None]
  - NON-SMALL CELL LUNG CANCER STAGE IIIB [None]
  - PLEURAL EFFUSION [None]
  - PULMONARY EMBOLISM [None]
  - SUDDEN DEATH [None]
